FAERS Safety Report 10187862 (Version 1)
Quarter: 2014Q2

REPORT INFORMATION
  Report Type: Spontaneous
  Country: US (occurrence: US)
  Receive Date: 20140522
  Receipt Date: 20140522
  Transmission Date: 20141212
  Serious: No
  Sender: FDA-Public Use
  Company Number: US-SA-2013SA107634

PATIENT
  Age: 63 Year
  Sex: Female

DRUGS (3)
  1. LANTUS SOLOSTAR [Suspect]
     Indication: DIABETES MELLITUS
     Dosage: PRODUCT STARTED ABOUT TWO AND HALF MONTHS AGO. DOSE:22 UNIT(S)
     Route: 058
  2. SOLOSTAR [Concomitant]
     Indication: DIABETES MELLITUS
     Dosage: PRODUCT STARTED TWO AND HALF MONTHS AGO.
  3. HUMALOG [Concomitant]

REACTIONS (6)
  - Myalgia [Not Recovered/Not Resolved]
  - Sleep disorder [Not Recovered/Not Resolved]
  - Fatigue [Not Recovered/Not Resolved]
  - Blood glucose increased [Not Recovered/Not Resolved]
  - Drug dose omission [Not Recovered/Not Resolved]
  - Incorrect route of drug administration [Unknown]
